FAERS Safety Report 25509783 (Version 1)
Quarter: 2025Q3

REPORT INFORMATION
  Report Type: Spontaneous
  Country: EU (occurrence: EU)
  Receive Date: 20250703
  Receipt Date: 20250703
  Transmission Date: 20251021
  Serious: Yes (Death, Hospitalization, Other)
  Sender: AUROBINDO
  Company Number: EU-EMA-DD-20220824-7180175-121453

PATIENT
  Age: 55 Year
  Sex: Male

DRUGS (7)
  1. MYCOPHENOLIC ACID [Suspect]
     Active Substance: MYCOPHENOLIC ACID
     Indication: Prophylaxis against graft versus host disease
     Route: 065
  2. FLUDARABINE [Suspect]
     Active Substance: FLUDARABINE PHOSPHATE
     Indication: Bone marrow conditioning regimen
     Dosage: 30 MILLIGRAM, ONCE A DAY
     Route: 065
     Dates: start: 20101101
  3. THYMOCYTE IMMUNE GLOBULIN NOS [Concomitant]
     Active Substance: THYMOCYTE IMMUNE GLOBULIN NOS
     Indication: Bone marrow conditioning regimen
     Route: 065
  4. CYCLOSPORINE [Concomitant]
     Active Substance: CYCLOSPORINE
     Indication: Prophylaxis
     Route: 065
     Dates: start: 20101101
  5. METHOTREXATE [Concomitant]
     Active Substance: METHOTREXATE
     Indication: Prophylaxis
     Route: 065
  6. METHYLPREDNISOLONE [Concomitant]
     Active Substance: METHYLPREDNISOLONE
     Indication: Prophylaxis against graft versus host disease
     Route: 065
  7. THIOTEPA [Concomitant]
     Active Substance: THIOTEPA
     Indication: Bone marrow conditioning regimen
     Route: 065

REACTIONS (16)
  - Acute graft versus host disease in intestine [Fatal]
  - Acute graft versus host disease in skin [Fatal]
  - Blindness cortical [Fatal]
  - Hepatic failure [Fatal]
  - Off label use [Fatal]
  - Toxic leukoencephalopathy [Fatal]
  - Acute graft versus host disease [Fatal]
  - Neurotoxicity [Unknown]
  - Pyrexia [Recovered/Resolved]
  - Hypoaesthesia [Unknown]
  - Confusional state [Unknown]
  - Loss of proprioception [Unknown]
  - Blindness [Unknown]
  - Paraplegia [Unknown]
  - Claustrophobia [Unknown]
  - Delirium [Unknown]

NARRATIVE: CASE EVENT DATE: 20101225
